FAERS Safety Report 11199148 (Version 1)
Quarter: 2015Q2

REPORT INFORMATION
  Report Type: Spontaneous
  Country: US (occurrence: US)
  Receive Date: 20150618
  Receipt Date: 20150618
  Transmission Date: 20150821
  Serious: No
  Sender: FDA-Public Use
  Company Number: US-TEVA-563468USA

PATIENT
  Age: 30 Year
  Sex: Female

DRUGS (2)
  1. LAMOTRIGINE. [Suspect]
     Active Substance: LAMOTRIGINE
     Indication: BIPOLAR DISORDER
     Route: 065
     Dates: start: 20150420
  2. LAMOTRIGINE. [Suspect]
     Active Substance: LAMOTRIGINE
     Route: 065
     Dates: start: 201410, end: 20141220

REACTIONS (3)
  - Insomnia [Unknown]
  - Panic attack [Unknown]
  - Lactation disorder [Unknown]

NARRATIVE: CASE EVENT DATE: 20150420
